FAERS Safety Report 5842804-4 (Version None)
Quarter: 2008Q3

REPORT INFORMATION
  Report Type: 
  Country: None (occurrence: None)
  Receive Date: 20080811
  Receipt Date: 20080730
  Transmission Date: 20090109
  Serious: Yes (Life-Threatening, Hospitalization)
  Sender: FDA-Public Use
  Company Number: 20085448

PATIENT
  Sex: Male

DRUGS (1)
  1. LIORESAL [Suspect]
     Indication: MUSCLE SPASTICITY
     Dosage: 59.94 MCG DAILY, INTRATHECAL
     Route: 037

REACTIONS (4)
  - HYPERTONIA [None]
  - INTRACRANIAL HYPOTENSION [None]
  - MENINGITIS [None]
  - PSYCHOTIC DISORDER [None]
